FAERS Safety Report 6732602-1 (Version None)
Quarter: 2010Q2

REPORT INFORMATION
  Report Type: 
  Country: None (occurrence: None)
  Receive Date: 20100519
  Receipt Date: 20100507
  Transmission Date: 20101027
  Serious: Yes (Hospitalization)
  Sender: FDA-Public Use
  Company Number: PHHY2010GB19001

PATIENT
  Sex: Male

DRUGS (4)
  1. CLOZARIL [Suspect]
     Indication: SCHIZOPHRENIA
     Dosage: 100 MG, BID
     Route: 048
     Dates: start: 20060209
  2. PHENYTOIN [Concomitant]
     Indication: CONVULSION
     Dosage: 50 MG, 5QD
     Route: 048
  3. HYOSCINE [Concomitant]
     Dosage: 300 MG, QD
     Route: 048
  4. CLONAZEPAM [Concomitant]
     Indication: CONVULSION
     Dosage: 0.5MG MANE AND 1.0MG NOCTE
     Route: 048

REACTIONS (3)
  - LOSS OF CONSCIOUSNESS [None]
  - LUNG DISORDER [None]
  - PULMONARY EMBOLISM [None]
